FAERS Safety Report 17182800 (Version 1)
Quarter: 2019Q4

REPORT INFORMATION
  Report Type: Spontaneous
  Country: US (occurrence: US)
  Receive Date: 20191220
  Receipt Date: 20191220
  Transmission Date: 20200122
  Serious: No
  Sender: FDA-Public Use
  Company Number: US-AUROBINDO-AUR-APL-2019-069953

PATIENT
  Age: 62 Year
  Sex: Female
  Weight: 60.3 kg

DRUGS (1)
  1. CLOZAPINE TABLET USP 25 MG [Suspect]
     Active Substance: CLOZAPINE
     Indication: PRODUCT USED FOR UNKNOWN INDICATION
     Dosage: UNK, 02 DOSES
     Route: 065

REACTIONS (1)
  - Product use in unapproved therapeutic environment [Unknown]
